FAERS Safety Report 5096364-9 (Version None)
Quarter: 2006Q3

REPORT INFORMATION
  Report Type: 
  Country: None (occurrence: None)
  Receive Date: 20060728
  Receipt Date: 20060512
  Transmission Date: 20061208
  Serious: No
  Sender: FDA-Public Use
  Company Number: COT_0529_2006

PATIENT
  Age: 71 Year
  Sex: Female
  Weight: 86.637 kg

DRUGS (12)
  1. VENTAVIS [Suspect]
     Indication: SCLERODERMA
     Dosage: 5 MCG 6TO9X/DAY IH
     Dates: start: 20060503
  2. AMIODARONE [Suspect]
  3. TRACLEER [Concomitant]
  4. NIFEDIPINE [Concomitant]
  5. ASPIRIN [Concomitant]
  6. SENNA [Concomitant]
  7. THEOPHYLLINE [Concomitant]
  8. SYNTHROID [Concomitant]
  9. LASIX [Concomitant]
  10. AVAPRO [Concomitant]
  11. NAPROXEN [Concomitant]
  12. ACCUPRIL [Concomitant]

REACTIONS (1)
  - RASH PRURITIC [None]
